FAERS Safety Report 9792230 (Version 1)
Quarter: 2013Q4

REPORT INFORMATION
  Report Type: Spontaneous
  Country: US (occurrence: None)
  Receive Date: 20131231
  Receipt Date: 20131231
  Transmission Date: 20140711
  Serious: Yes (Life-Threatening, Disabling)
  Sender: FDA-Public Use
  Company Number: None

PATIENT
  Age: 24 Year
  Sex: Male
  Weight: 106.6 kg

DRUGS (2)
  1. LANTUS SOLOSTAR 100 UNITS/ML [Suspect]
     Indication: TYPE 1 DIABETES MELLITUS
     Dosage: GIVEN INTO/UNDER THE SKIN
  2. APIDRA SOLOSTAR [Suspect]
     Indication: DIABETES MELLITUS
     Dosage: 1/15SCARBS?GIVEN INTO/UNDER THE SKIN

REACTIONS (2)
  - Depression [None]
  - Suicidal ideation [None]
